FAERS Safety Report 7291432-5 (Version None)
Quarter: 2011Q1

REPORT INFORMATION
  Report Type: 
  Country: None (occurrence: None)
  Receive Date: 20110214
  Receipt Date: 20110208
  Transmission Date: 20110831
  Serious: Yes (Hospitalization)
  Sender: FDA-Public Use
  Company Number: Z0006504B

PATIENT
  Sex: Male
  Weight: 66 kg

DRUGS (1)
  1. CHLORAMBUCIL [Suspect]
     Dosage: 10MGM2 PER DAY
     Route: 048
     Dates: start: 20101015

REACTIONS (1)
  - HAEMOLYTIC ANAEMIA [None]
